FAERS Safety Report 19379973 (Version 2)
Quarter: 2021Q2

REPORT INFORMATION
  Report Type: Spontaneous
  Country: JP (occurrence: JP)
  Receive Date: 20210607
  Receipt Date: 20210618
  Transmission Date: 20210717
  Serious: Yes (Other)
  Sender: FDA-Public Use
  Company Number: JP-LEO PHARMA-336173

PATIENT
  Age: 47 Year
  Sex: Female

DRUGS (1)
  1. DOVOBET [Suspect]
     Active Substance: BETAMETHASONE\CALCIPOTRIENE
     Indication: PSORIASIS
     Dosage: 90G/MONTH
     Route: 065

REACTIONS (2)
  - Adrenal suppression [Unknown]
  - Cushing^s syndrome [Not Recovered/Not Resolved]
